FAERS Safety Report 5076653-4 (Version None)
Quarter: 2006Q3

REPORT INFORMATION
  Report Type: 
  Country: None (occurrence: None)
  Receive Date: 20060810
  Receipt Date: 20060626
  Transmission Date: 20061208
  Serious: Yes (Hospitalization)
  Sender: FDA-Public Use
  Company Number: PHFR2006GB02448

PATIENT
  Sex: Male

DRUGS (3)
  1. GRAPEFRUIT JUICE [Suspect]
  2. DIOVAN [Suspect]
     Route: 065
  3. SIMVASTATIN [Concomitant]

REACTIONS (6)
  - BLOOD CREATININE INCREASED [None]
  - BLOOD PRESSURE DECREASED [None]
  - BLOOD UREA INCREASED [None]
  - HEART RATE DECREASED [None]
  - NONSPECIFIC REACTION [None]
  - URINE OUTPUT INCREASED [None]
